FAERS Safety Report 5755370-9 (Version None)
Quarter: 2008Q2

REPORT INFORMATION
  Report Type: 
  Country: None (occurrence: None)
  Receive Date: 20080602
  Receipt Date: 20080519
  Transmission Date: 20081010
  Serious: Yes (Other)
  Sender: FDA-Public Use
  Company Number: US-BAYER-200811034BCC

PATIENT
  Age: 53 Year
  Sex: Female
  Weight: 66 kg

DRUGS (28)
  1. CITRACAL 250+D [Suspect]
     Indication: VITAMIN SUPPLEMENTATION
     Dosage: TOTAL DAILY DOSE: 2 DF
     Route: 048
     Dates: start: 20060301, end: 20080101
  2. CITRACAL 250+D [Suspect]
     Dosage: TOTAL DAILY DOSE: 5 DF
     Route: 048
     Dates: start: 20080101
  3. CITRACAL 250+D [Suspect]
     Route: 048
     Dates: start: 20080201, end: 20080301
  4. CITRACAL 250+D [Suspect]
     Route: 048
     Dates: start: 20070801, end: 20071001
  5. CITRACAL CITRATE PETITES [Suspect]
     Indication: BONE DENSITY DECREASED
     Route: 048
     Dates: start: 20070101, end: 20070401
  6. CITRACAL + D [Suspect]
     Indication: BONE DENSITY DECREASED
     Route: 048
     Dates: start: 20071201, end: 20080201
  7. CITRACAL + D [Suspect]
     Route: 048
     Dates: start: 20071001, end: 20071101
  8. CITRACAL + D [Suspect]
     Route: 048
     Dates: start: 20071101, end: 20071201
  9. UTRADENSE CALCIUM CITRATE TABLETS [Suspect]
     Indication: BONE DENSITY DECREASED
     Route: 048
     Dates: start: 20070401, end: 20070601
  10. UTRADENSE CALCIUM CITRATE TABLETS [Suspect]
     Route: 048
     Dates: start: 20060501, end: 20060801
  11. UTRADENSE CALCIUM CITRATE TABLETS [Suspect]
     Dosage: AS USED: 2 DF
     Route: 048
     Dates: start: 20060401, end: 20070601
  12. UTRADENSE CALCIUM CITRATE TABLETS [Suspect]
     Route: 048
     Dates: start: 20061001, end: 20061201
  13. ALEVE [Suspect]
     Indication: DRUG USE FOR UNKNOWN INDICATION
     Route: 048
  14. SYNTHROID [Concomitant]
     Dosage: TOTAL DAILY DOSE: 50 ?G  UNIT DOSE: 100 ?G
     Route: 048
     Dates: start: 20070305
  15. SYNTHROID [Concomitant]
     Dates: start: 19950101
  16. KLOR-CON [Concomitant]
     Dates: start: 20020101
  17. IMITREX [Concomitant]
     Dates: start: 19980101
  18. NATURES BOUNTY CRANBERRY [Concomitant]
     Dates: start: 19740101
  19. NATURE MADE COMPLETE VITAMIN [Concomitant]
     Dates: start: 19740101
  20. NATURE MADE MAGNESIUM [Concomitant]
     Dates: start: 19740101
  21. IRON [Concomitant]
     Dates: start: 19740101
  22. VITAMIN E [Concomitant]
     Dates: start: 19740101
  23. ASCORBIC ACID [Concomitant]
     Dates: start: 19740101
  24. VITAMIN B-12 [Concomitant]
     Dates: start: 19740101
  25. VITAMIN B-12 [Concomitant]
     Dates: start: 19740101
  26. SALMON OIL [Concomitant]
  27. MAREZINE [Concomitant]
  28. SIMETHICONE [Concomitant]

REACTIONS (13)
  - BRONCHITIS [None]
  - CHEST DISCOMFORT [None]
  - COUGH [None]
  - DERMATITIS CONTACT [None]
  - DYSPNOEA [None]
  - FATIGUE [None]
  - ORAL CANDIDIASIS [None]
  - PULMONARY GRANULOMA [None]
  - RASH [None]
  - RESPIRATORY TRACT CONGESTION [None]
  - THROAT TIGHTNESS [None]
  - URINARY BLADDER HAEMORRHAGE [None]
  - WHEEZING [None]
